FAERS Safety Report 6941090-1 (Version None)
Quarter: 2010Q3

REPORT INFORMATION
  Report Type: 
  Country: None (occurrence: None)
  Receive Date: 20100825
  Receipt Date: 20100813
  Transmission Date: 20110219
  Serious: Yes (Other)
  Sender: FDA-Public Use
  Company Number: CA-PFIZER INC-2010102105

PATIENT
  Age: 30 Year
  Sex: Female

DRUGS (3)
  1. DILANTIN [Suspect]
     Dosage: 100MG 3X/DAY AND 75MG AT NOON
     Dates: start: 19950101
  2. LAMICTAL [Concomitant]
     Dosage: UNK
     Dates: start: 20030101
  3. CLONAZEPAM [Concomitant]
     Dosage: UNK

REACTIONS (2)
  - BREAST ATROPHY [None]
  - HYPERTRICHOSIS [None]
